FAERS Safety Report 8121824-3 (Version None)
Quarter: 2012Q1

REPORT INFORMATION
  Report Type: 
  Country: None (occurrence: None)
  Receive Date: 20120207
  Receipt Date: 20120207
  Transmission Date: 20120608
  Serious: No
  Sender: FDA-Public Use
  Company Number: None

PATIENT

DRUGS (1)
  1. HUMAN CHORIONIC GONADOTROPHIN (HCG) [Suspect]

REACTIONS (1)
  - OFF LABEL USE [None]
